FAERS Safety Report 11054649 (Version 1)
Quarter: 2015Q2

REPORT INFORMATION
  Report Type: Spontaneous
  Country: US (occurrence: US)
  Receive Date: 20150422
  Receipt Date: 20150422
  Transmission Date: 20150821
  Serious: Yes (Other)
  Sender: FDA-Public Use
  Company Number: US-JNJFOC-001-0184-M0100049

PATIENT
  Age: 24 Year
  Sex: Female

DRUGS (7)
  1. ZANTAC [Interacting]
     Active Substance: RANITIDINE HYDROCHLORIDE
     Indication: MULTIPLE ALLERGIES
     Dosage: FREQUENCY TEXT: TID DAILY DOSE QTY: 450 MG
     Route: 048
     Dates: start: 20010724, end: 200108
  2. ZYRTEC [Interacting]
     Active Substance: CETIRIZINE HYDROCHLORIDE
     Indication: MULTIPLE ALLERGIES
     Dosage: FREQUENCY TEXT: UNKNOWN DAILY DOSE TEXT: UNKNOWN
     Route: 065
     Dates: start: 20010724, end: 20010809
  3. CLARITIN [Interacting]
     Active Substance: LORATADINE
     Indication: MULTIPLE ALLERGIES
     Dosage: FREQUENCY TEXT: UNKNOWN DAILY DOSE TEXT: UNKNOWN
     Route: 065
     Dates: start: 20010724, end: 200108
  4. ATARAX [Interacting]
     Active Substance: HYDROXYZINE\HYDROXYZINE HYDROCHLORIDE
     Indication: MULTIPLE ALLERGIES
     Dosage: FREQUENCY TEXT: UNKNOWN DAILY DOSE QTY: 25 MG
     Route: 065
     Dates: start: 20010724, end: 20010809
  5. ZYRTEC [Interacting]
     Active Substance: CETIRIZINE HYDROCHLORIDE
     Route: 065
  6. BENADRYL [Suspect]
     Active Substance: DIPHENHYDRAMINE HYDROCHLORIDE
     Route: 065
  7. BENADRYL [Suspect]
     Active Substance: DIPHENHYDRAMINE HYDROCHLORIDE
     Indication: MULTIPLE ALLERGIES
     Dosage: FREQUENCY TEXT: UNKNOWN DAILY DOSE TEXT: UNKNOWN
     Route: 065
     Dates: start: 20010724, end: 20010809

REACTIONS (6)
  - Drug interaction [Unknown]
  - Urticaria [Recovering/Resolving]
  - Personality disorder [Unknown]
  - Hypertension [Unknown]
  - Loss of consciousness [Recovered/Resolved]
  - Hypersensitivity [Not Recovered/Not Resolved]

NARRATIVE: CASE EVENT DATE: 2001
